FAERS Safety Report 6903362-6 (Version None)
Quarter: 2010Q3

REPORT INFORMATION
  Report Type: 
  Country: None (occurrence: None)
  Receive Date: 20100803
  Receipt Date: 20080918
  Transmission Date: 20110219
  Serious: No
  Sender: FDA-Public Use
  Company Number: US-PFIZER INC-2008079037

PATIENT
  Sex: Female
  Weight: 67.3 kg

DRUGS (5)
  1. LYRICA [Suspect]
     Indication: FIBROMYALGIA
     Dates: start: 20080914
  2. MONTELUKAST SODIUM [Concomitant]
  3. DIAMOX SRC [Concomitant]
  4. WARFARIN SODIUM [Concomitant]
  5. ACETYLSALICYLIC ACID SRT [Concomitant]

REACTIONS (2)
  - DIARRHOEA [None]
  - OROPHARYNGEAL PAIN [None]
